FAERS Safety Report 8972400 (Version 1)
Quarter: 2012Q4

REPORT INFORMATION
  Report Type: Spontaneous
  Country: US (occurrence: None)
  Receive Date: 20121217
  Receipt Date: 20121217
  Transmission Date: 20130627
  Serious: Yes (Hospitalization)
  Sender: FDA-Public Use
  Company Number: None

PATIENT
  Age: 65 Year
  Sex: Female
  Weight: 98 kg

DRUGS (22)
  1. MYCOPHENOLATE [Suspect]
     Indication: RENAL TRANSPLANT
     Dates: start: 20120601, end: 20121110
  2. MYCOPHENOLATE [Suspect]
     Indication: POSTOPERATIVE CARE
     Dates: start: 20120601, end: 20121110
  3. VALGANCICLOVIR [Suspect]
     Indication: RENAL TRANSPLANT
     Dates: start: 20120601, end: 20121110
  4. VALGANCICLOVIR [Suspect]
     Indication: POSTOPERATIVE CARE
     Dates: start: 20120601, end: 20121110
  5. ALPRAZOLAM [Concomitant]
  6. AMLODIPINE [Concomitant]
  7. ASA [Concomitant]
  8. ATENOLOL [Concomitant]
  9. PREDNISONE [Concomitant]
  10. PEPCID [Concomitant]
  11. LANTUS [Concomitant]
  12. ZOLOFT [Concomitant]
  13. LAVAZA [Concomitant]
  14. LASIX [Concomitant]
  15. AMBIEN [Concomitant]
  16. CALCITRIOL [Concomitant]
  17. PHOSPHATES [Concomitant]
  18. MAGNESIUM [Concomitant]
  19. INSULIN REGULAR [Concomitant]
  20. ARANESP [Concomitant]
  21. PROGRAF [Concomitant]
  22. CARVEDILOL [Concomitant]

REACTIONS (2)
  - Sepsis [None]
  - Neutrophil count decreased [None]
